FAERS Safety Report 18776367 (Version 1)
Quarter: 2021Q1

REPORT INFORMATION
  Report Type: Report from Study
  Country: IT (occurrence: IT)
  Receive Date: 20210122
  Receipt Date: 20210122
  Transmission Date: 20210419
  Serious: Yes (Hospitalization)
  Sender: FDA-Public Use
  Company Number: IT-PFIZER INC-2021042654

PATIENT
  Age: 50 Year
  Sex: Female

DRUGS (4)
  1. RIZATRIPTAN DOC [Concomitant]
     Route: 048
  2. IBUPROFENE DOC [Concomitant]
     Route: 048
  3. FLUOXETIN MYLAN [Concomitant]
     Route: 048
  4. TAVOR (LORAZEPAM) [Suspect]
     Active Substance: LORAZEPAM
     Dosage: 12 DF, SINGLE
     Route: 048
     Dates: start: 20200510, end: 20200510

REACTIONS (4)
  - Drug abuse [Recovered/Resolved]
  - Toxicity to various agents [Recovered/Resolved]
  - Suicide attempt [Recovered/Resolved]
  - Intentional self-injury [Recovered/Resolved]

NARRATIVE: CASE EVENT DATE: 20200510
